FAERS Safety Report 23512597 (Version 1)
Quarter: 2024Q1

REPORT INFORMATION
  Report Type: Spontaneous
  Country: US (occurrence: US)
  Receive Date: 20240212
  Receipt Date: 20240212
  Transmission Date: 20240410
  Serious: No
  Sender: FDA-Public Use
  Company Number: US-ALCON LABORATORIES-ALC2023US001778

PATIENT
  Sex: Female

DRUGS (3)
  1. RHOPRESSA [Suspect]
     Active Substance: NETARSUDIL MESYLATE
     Indication: Product used for unknown indication
     Dosage: 1 DRP IN RIGHT EYE EVENING
     Route: 047
     Dates: start: 20230404
  2. RHOPRESSA [Suspect]
     Active Substance: NETARSUDIL MESYLATE
     Dosage: UNK
     Route: 047
     Dates: start: 20230407
  3. RHOPRESSA [Suspect]
     Active Substance: NETARSUDIL MESYLATE
     Dosage: UNK
     Route: 047
     Dates: start: 20230408

REACTIONS (1)
  - Intraocular pressure increased [Recovering/Resolving]
